FAERS Safety Report 13447316 (Version 1)
Quarter: 2017Q2

REPORT INFORMATION
  Report Type: Spontaneous
  Country: US (occurrence: US)
  Receive Date: 20170414
  Receipt Date: 20170414
  Transmission Date: 20170830
  Serious: Yes (Hospitalization)
  Sender: FDA-Public Use
  Company Number: None

PATIENT
  Age: 39 Year
  Sex: Female

DRUGS (1)
  1. GENVOYA [Suspect]
     Active Substance: COBICISTAT\ELVITEGRAVIR\EMTRICITABINE\TENOFOVIR ALAFENAMIDE FUMARATE
     Indication: HIV INFECTION
     Route: 048
     Dates: start: 20170328, end: 20170329

REACTIONS (6)
  - Dyspnoea [None]
  - Nausea [None]
  - Vomiting [None]
  - Syncope [None]
  - Body temperature fluctuation [None]
  - Dizziness [None]

NARRATIVE: CASE EVENT DATE: 20170329
